FAERS Safety Report 8627125 (Version 2)
Quarter: 2012Q4

REPORT INFORMATION
  Report Type: 
  Country: US (occurrence: US)
  Receive Date: 20120621
  Receipt Date: 20120924
  Transmission Date: 20130627
  Serious: No
  Sender: FDA-Public Use
  Company Number: US-ALLERGAN-1207290US

PATIENT
  Age: 75 Year
  Sex: Female

DRUGS (9)
  1. LUMIGAN [Suspect]
     Indication: GLAUCOMA
     Dosage: 2 Gtt, qhs
     Route: 047
     Dates: start: 201203, end: 201205
  2. LUMIGAN [Suspect]
     Dosage: 2 Gtt, qhs
     Route: 047
     Dates: start: 201206
  3. BETIMOL [Concomitant]
     Indication: GLAUCOMA
     Dosage: 2 Gtt, bid
     Route: 047
  4. DILTIAZEM HCL [Concomitant]
     Indication: HYPERTENSION
     Dosage: 300 mg, qd
     Route: 048
  5. DIOVAN [Concomitant]
     Indication: HYPERTENSION
     Dosage: 160 mg, UNK
     Route: 048
  6. METFORMIN [Concomitant]
     Indication: NIDDM
     Dosage: 850 mg, bid
     Route: 048
  7. GLYBURIDE [Concomitant]
     Indication: NIDDM
     Dosage: 10 mg, bid
     Route: 048
  8. JANUVIA [Concomitant]
     Indication: NIDDM
     Dosage: 100 mg, UNK
     Route: 048
  9. NEPTIZANE [Concomitant]
     Indication: GLAUCOMA
     Dosage: 25 mg, tid
     Route: 048

REACTIONS (2)
  - Visual impairment [Recovered/Resolved]
  - Wrong technique in drug usage process [Unknown]
